FAERS Safety Report 5660836-6 (Version None)
Quarter: 2008Q1

REPORT INFORMATION
  Report Type: 
  Country: None (occurrence: None)
  Receive Date: 20080311
  Receipt Date: 20080311
  Transmission Date: 20080703
  Serious: Yes (Other)
  Sender: FDA-Public Use
  Company Number: A0714456A

PATIENT
  Age: 22 Year
  Sex: Female

DRUGS (2)
  1. ALLI [Suspect]
     Indication: WEIGHT LOSS DIET
     Route: 048
     Dates: start: 20080213, end: 20080229
  2. DEPO-PROVERA [Concomitant]

REACTIONS (3)
  - DIABETES MELLITUS [None]
  - DIZZINESS [None]
  - GLUCOSE URINE PRESENT [None]
